FAERS Safety Report 21810906 (Version 4)
Quarter: 2023Q1

REPORT INFORMATION
  Report Type: Report from Study
  Country: IL (occurrence: None)
  Receive Date: 20230103
  Receipt Date: 20230202
  Transmission Date: 20230417
  Serious: Yes (Hospitalization)
  Sender: FDA-Public Use
  Company Number: IL-ROCHE-3156178

PATIENT
  Age: 84 Year
  Sex: Female
  Weight: 84.6 kg

DRUGS (12)
  1. MOSUNETUZUMAB [Suspect]
     Active Substance: MOSUNETUZUMAB
     Indication: Diffuse large B-cell lymphoma
     Dosage: ON 03/AUG/2022, SHE RECEIVED MOST RECENT DOSE 5 MG OF STUDY DRUG MOSUNETUZUMAB PRIOR TO SAE/AE.
     Route: 058
     Dates: start: 20220803
  2. POLATUZUMAB VEDOTIN [Suspect]
     Active Substance: POLATUZUMAB VEDOTIN
     Indication: Diffuse large B-cell lymphoma
     Dosage: ON 03/AUG/2022, SHE RECEIVED MOST RECENT DOSE 150 MG OF STUDY DRUG POLATUZUMAB VEDOTIN PRIOR TO SAE/
     Route: 042
     Dates: start: 20220803
  3. METFORMIN HYDROCHLORIDE [Concomitant]
     Active Substance: METFORMIN HYDROCHLORIDE
     Route: 048
  4. IMOVANE [Concomitant]
     Active Substance: ZOPICLONE
     Route: 048
  5. ELATROL [Concomitant]
     Route: 048
  6. LORAZEPAM [Concomitant]
     Active Substance: LORAZEPAM
     Route: 048
  7. GLAUTAN (ISRAEL) [Concomitant]
     Route: 047
  8. ALPHAGAN P [Concomitant]
     Active Substance: BRIMONIDINE TARTRATE
     Route: 047
  9. COSOPT [Concomitant]
     Active Substance: DORZOLAMIDE HYDROCHLORIDE\TIMOLOL MALEATE
     Route: 047
  10. DEXAMETHASONE [Concomitant]
     Active Substance: DEXAMETHASONE
     Route: 042
     Dates: start: 20220803, end: 20220803
  11. ACAMOLI [Concomitant]
     Route: 048
     Dates: start: 20220803, end: 20220803
  12. LORATADINE [Concomitant]
     Active Substance: LORATADINE
     Route: 048
     Dates: start: 20220803, end: 20220803

REACTIONS (1)
  - Cytokine release syndrome [Recovered/Resolved]

NARRATIVE: CASE EVENT DATE: 20220804
